FAERS Safety Report 12121318 (Version 1)
Quarter: 2016Q1

REPORT INFORMATION
  Report Type: Report from Study
  Country: JP (occurrence: JP)
  Receive Date: 20160226
  Receipt Date: 20160226
  Transmission Date: 20160526
  Serious: Yes (Death)
  Sender: FDA-Public Use
  Company Number: JP-B.I. PHARMACEUTICALS,INC./RIDGEFIELD-2015-BI-05010NB

PATIENT
  Age: 54 Year
  Sex: Female
  Weight: 42.6 kg

DRUGS (5)
  1. METHOTREXATE [Concomitant]
     Active Substance: METHOTREXATE
     Indication: LUNG ADENOCARCINOMA
     Route: 065
     Dates: start: 20150619, end: 20150626
  2. PREDNISOLONE. [Concomitant]
     Active Substance: PREDNISOLONE
     Indication: LUNG ADENOCARCINOMA
     Route: 065
     Dates: start: 20150619, end: 20150626
  3. GILOTRIF [Suspect]
     Active Substance: AFATINIB
     Indication: LUNG ADENOCARCINOMA
     Dosage: 40 MG
     Route: 065
     Dates: start: 20141126, end: 20150202
  4. GILOTRIF [Suspect]
     Active Substance: AFATINIB
     Dosage: 20 MG
     Route: 065
     Dates: start: 20150217, end: 20150616
  5. CYTARABINE. [Concomitant]
     Active Substance: CYTARABINE
     Indication: LUNG ADENOCARCINOMA
     Route: 065
     Dates: start: 20150619, end: 20150626

REACTIONS (3)
  - Cutaneous symptom [Recovered/Resolved]
  - Diarrhoea [Recovered/Resolved]
  - Death [Fatal]

NARRATIVE: CASE EVENT DATE: 20141129
